FAERS Safety Report 18221571 (Version 1)
Quarter: 2020Q3

REPORT INFORMATION
  Report Type: Spontaneous
  Country: PH (occurrence: PH)
  Receive Date: 20200902
  Receipt Date: 20200902
  Transmission Date: 20201103
  Serious: Yes (Other)
  Sender: FDA-Public Use
  Company Number: PH-ROCHE-2667910

PATIENT
  Age: 60 Year
  Sex: Male
  Weight: 85 kg

DRUGS (1)
  1. TOCILIZUMAB. [Suspect]
     Active Substance: TOCILIZUMAB
     Indication: COVID-19
     Dosage: 2 DOSES
     Route: 041
     Dates: start: 20200526, end: 20200527

REACTIONS (9)
  - Tachypnoea [Unknown]
  - Off label use [Unknown]
  - Blood creatinine increased [Unknown]
  - Blood urea increased [Unknown]
  - Hypoxia [Unknown]
  - Hypoxia [Recovering/Resolving]
  - Product use in unapproved indication [Unknown]
  - Pneumonia [Unknown]
  - Respiratory acidosis [Unknown]
